FAERS Safety Report 22257823 (Version 3)
Quarter: 2023Q2

REPORT INFORMATION
  Report Type: Spontaneous
  Country: IN (occurrence: IN)
  Receive Date: 20230427
  Receipt Date: 20230510
  Transmission Date: 20230722
  Serious: Yes (Other)
  Sender: FDA-Public Use
  Company Number: IN-drreddys-LIT/IND/23/0163951

PATIENT
  Age: 53 Year
  Sex: Male

DRUGS (11)
  1. TRASTUZUMAB [Suspect]
     Active Substance: TRASTUZUMAB
     Indication: Gallbladder cancer metastatic
     Dosage: COMPLETED EIGHT CYCLES
     Dates: end: 202011
  2. TRASTUZUMAB [Suspect]
     Active Substance: TRASTUZUMAB
     Indication: Gallbladder adenocarcinoma
     Dates: start: 202011, end: 202102
  3. OXALIPLATIN [Suspect]
     Active Substance: OXALIPLATIN
     Indication: Gallbladder adenocarcinoma
     Dosage: FOUR CYCLES
     Dates: start: 2021
  4. IRINOTECAN [Suspect]
     Active Substance: IRINOTECAN
     Indication: Gallbladder cancer metastatic
     Dosage: FOUR CYCLES
     Dates: start: 2021
  5. CAPECITABINE [Suspect]
     Active Substance: CAPECITABINE
     Indication: Gallbladder cancer metastatic
     Dates: start: 202011, end: 202102
  6. GEMCITABINE [Suspect]
     Active Substance: GEMCITABINE
     Indication: Gallbladder cancer metastatic
     Dosage: COMPLETED EIGHT CYCLES
     Dates: end: 202011
  7. GEMCITABINE [Suspect]
     Active Substance: GEMCITABINE
     Indication: Gallbladder adenocarcinoma
  8. CISPLATIN [Suspect]
     Active Substance: CISPLATIN
     Indication: Gallbladder cancer metastatic
     Dosage: COMPLETED EIGHT CYCLES
     Dates: end: 202011
  9. CISPLATIN [Suspect]
     Active Substance: CISPLATIN
     Indication: Gallbladder adenocarcinoma
  10. FLUOROURACIL [Suspect]
     Active Substance: FLUOROURACIL
     Indication: Gallbladder cancer metastatic
     Dosage: FOUR CYCLES
     Dates: start: 2021
  11. LEUCOVORIN [Suspect]
     Active Substance: LEUCOVORIN
     Indication: Gallbladder cancer metastatic
     Dosage: FOUR CYCLES
     Dates: start: 2021

REACTIONS (4)
  - Disease progression [Unknown]
  - Gallbladder cancer metastatic [Unknown]
  - Therapy partial responder [Unknown]
  - Product use in unapproved indication [Unknown]
